FAERS Safety Report 16255277 (Version 1)
Quarter: 2019Q2

REPORT INFORMATION
  Report Type: Spontaneous
  Country: US (occurrence: US)
  Receive Date: 20190326
  Receipt Date: 20190326
  Transmission Date: 20190711
  Serious: No
  Sender: FDA-Public Use
  Company Number: None

PATIENT
  Age: 69 Year
  Sex: Female
  Weight: 65.32 kg

DRUGS (6)
  1. SYNTHROID [Concomitant]
     Active Substance: LEVOTHYROXINE SODIUM
  2. PROLIA [Suspect]
     Active Substance: DENOSUMAB
     Indication: BONE DENSITY DECREASED
     Dosage: ?          QUANTITY:60 ML MILLILITRE(S);?
     Dates: start: 20180104
  3. PACE MAKER - MEDTRONIC [Concomitant]
  4. SLEEP APNEA MACHINE BY RESMED [Concomitant]
  5. MULTI-VITAMIN [Concomitant]
     Active Substance: .ALPHA.-TOCOPHEROL ACETATE, DL-\ASCORBIC ACID\CYANOCOBALAMIN\FLUORIDE ION\FOLIC ACID\NIACIN\PYRIDOXINE\RIBOFLAVIN\THIAMINE\VITAMIN A\VITAMIN D
  6. VIT D [Concomitant]
     Active Substance: VITAMIN D NOS

REACTIONS (8)
  - Hallucination [None]
  - Amnesia [None]
  - Arthralgia [None]
  - Headache [None]
  - Gastrointestinal disorder [None]
  - Respiratory rate decreased [None]
  - Hypotension [None]
  - Depression [None]

NARRATIVE: CASE EVENT DATE: 20180104
